FAERS Safety Report 8343448-5 (Version None)
Quarter: 2012Q2

REPORT INFORMATION
  Report Type: 
  Country: None (occurrence: None)
  Receive Date: 20120508
  Receipt Date: 20120502
  Transmission Date: 20120825
  Serious: Yes (Other)
  Sender: FDA-Public Use
  Company Number: PHHY2011BR91108

PATIENT
  Sex: Female

DRUGS (4)
  1. DOSTINEX [Concomitant]
     Dosage: 5 DF, QW
     Route: 048
  2. METFORMIN [Concomitant]
     Indication: DIABETES MELLITUS
     Dosage: 850 MG 2 TAB AT LUNCH AND 2 AT DINNER
     Route: 048
  3. SANDOSTATIN LAR [Suspect]
     Indication: ACROMEGALY
     Dosage: 30 MG, QMO
  4. ASPIRIN [Concomitant]
     Dosage: 1 DF, QD
     Route: 048

REACTIONS (10)
  - SOMNOLENCE [None]
  - INJECTION SITE PAIN [None]
  - MALAISE [None]
  - TACHYCARDIA [None]
  - DIABETES MELLITUS INADEQUATE CONTROL [None]
  - FATIGUE [None]
  - CARDIAC DISORDER [None]
  - ARTHRALGIA [None]
  - PAIN IN EXTREMITY [None]
  - ASTHENIA [None]
